FAERS Safety Report 18251261 (Version 1)
Quarter: 2020Q3

REPORT INFORMATION
  Report Type: Spontaneous
  Country: GB (occurrence: GB)
  Receive Date: 20200910
  Receipt Date: 20200910
  Transmission Date: 20201103
  Serious: Yes (Hospitalization, Other)
  Sender: FDA-Public Use
  Company Number: GB-TEVA-2020-GB-1824415

PATIENT
  Age: 35 Year
  Sex: Male
  Weight: 106.7 kg

DRUGS (7)
  1. CODEINE [Concomitant]
     Active Substance: CODEINE
  2. FREMANEZUMAB [Suspect]
     Active Substance: FREMANEZUMAB
     Indication: MIGRAINE PROPHYLAXIS
     Route: 058
     Dates: start: 20200713, end: 20200713
  3. SODIUM VALPROATE [Concomitant]
     Active Substance: VALPROATE SODIUM
  4. IBUPROFEN. [Concomitant]
     Active Substance: IBUPROFEN
  5. DOMPERIDONE [Concomitant]
     Active Substance: DOMPERIDONE
  6. CANDESARTAN. [Concomitant]
     Active Substance: CANDESARTAN
  7. CO?AMOXICLAV [Concomitant]
     Active Substance: AMOXICILLIN\CLAVULANATE POTASSIUM

REACTIONS (4)
  - Nausea [Not Recovered/Not Resolved]
  - Fatigue [Not Recovered/Not Resolved]
  - Myalgia [Not Recovered/Not Resolved]
  - Vertigo [Not Recovered/Not Resolved]

NARRATIVE: CASE EVENT DATE: 20200721
